FAERS Safety Report 5293123-9 (Version None)
Quarter: 2007Q2

REPORT INFORMATION
  Report Type: 
  Country: None (occurrence: None)
  Receive Date: 20070411
  Receipt Date: 20070327
  Transmission Date: 20071010
  Serious: Yes (Death)
  Sender: FDA-Public Use
  Company Number: US-AMGEN-US217142

PATIENT
  Sex: Male
  Weight: 87.5 kg

DRUGS (2)
  1. ENBREL [Suspect]
     Indication: LUNG DISORDER
     Route: 065
     Dates: start: 20070306, end: 20070320
  2. CORTICOSTEROID NOS [Concomitant]
     Dates: start: 20070101

REACTIONS (2)
  - RENAL FAILURE [None]
  - RESPIRATORY FAILURE [None]
